FAERS Safety Report 25747667 (Version 1)
Quarter: 2025Q3

REPORT INFORMATION
  Report Type: Spontaneous
  Country: MX (occurrence: MX)
  Receive Date: 20250901
  Receipt Date: 20250901
  Transmission Date: 20251020
  Serious: Yes (Other)
  Sender: ALEXION PHARMACEUTICALS
  Company Number: MX-AstraZeneca-CH-00939295A

PATIENT
  Sex: Female
  Weight: 152 kg

DRUGS (2)
  1. BUDESONIDE\FORMOTEROL FUMARATE DIHYDRATE [Suspect]
     Active Substance: BUDESONIDE\FORMOTEROL FUMARATE DIHYDRATE
     Indication: Lung disorder
     Route: 065
  2. LIVIAL [Concomitant]
     Active Substance: TIBOLONE
     Indication: Oropharyngeal discomfort
     Route: 065

REACTIONS (5)
  - Pneumonitis [Unknown]
  - Lymphadenopathy [Unknown]
  - Vocal cord inflammation [Unknown]
  - Pharyngeal swelling [Unknown]
  - Off label use [Unknown]
